FAERS Safety Report 25389375 (Version 1)
Quarter: 2025Q2

REPORT INFORMATION
  Report Type: Spontaneous
  Country: FR (occurrence: FR)
  Receive Date: 20250603
  Receipt Date: 20250603
  Transmission Date: 20250716
  Serious: Yes (Hospitalization)
  Sender: TEVA
  Company Number: None

PATIENT
  Age: 76 Year
  Sex: Female
  Weight: 66.45 kg

DRUGS (8)
  1. FLUOXETINE [Suspect]
     Active Substance: FLUOXETINE HYDROCHLORIDE
     Indication: Brief psychotic disorder with marked stressors
     Dosage: 60MG IN THE MORNING: FLUOXETINE HYDROCHLORIDE
     Route: 048
     Dates: start: 1992, end: 20241213
  2. PROPRANOLOL [Concomitant]
     Active Substance: PROPRANOLOL HYDROCHLORIDE
     Indication: Extrasystoles
     Route: 065
  3. XANAX [Concomitant]
     Active Substance: ALPRAZOLAM
     Indication: Depression
     Route: 065
     Dates: end: 20241213
  4. RISPERIDONE [Concomitant]
     Active Substance: RISPERIDONE
     Indication: Brief psychotic disorder with marked stressors
     Dosage: 2MG IN THE EVENING
     Route: 048
     Dates: start: 2014
  5. ATORVASTATIN [Concomitant]
     Active Substance: ATORVASTATIN
     Indication: Dyslipidaemia
     Route: 065
  6. KARDEGIC [Concomitant]
     Active Substance: ASPIRIN DL-LYSINE
     Indication: Arteriosclerosis
     Route: 065
  7. TRAMADOL [Suspect]
     Active Substance: TRAMADOL
     Indication: Lumbar vertebral fracture
     Dosage: 50MG LP MORNING AND EVENING: TRAMADOL HYDROCHLORIDE
     Route: 048
     Dates: start: 202401, end: 202412
  8. METFORMIN HYDROCHLORIDE [Concomitant]
     Active Substance: METFORMIN HYDROCHLORIDE
     Indication: Type 2 diabetes mellitus
     Route: 065

REACTIONS (1)
  - Hyponatraemia [Recovered/Resolved]

NARRATIVE: CASE EVENT DATE: 20241202
